FAERS Safety Report 6138951-2 (Version None)
Quarter: 2009Q1

REPORT INFORMATION
  Report Type: 
  Country: None (occurrence: None)
  Receive Date: 20090324
  Receipt Date: 20090319
  Transmission Date: 20090719
  Serious: Yes (Disabling, Other)
  Sender: FDA-Public Use
  Company Number: 2009002063

PATIENT
  Age: 57 Year
  Sex: Female
  Weight: 52.1637 kg

DRUGS (11)
  1. FENTANYL CITRATE [Suspect]
     Indication: BACK PAIN
     Dosage: SEE IMAGE
     Route: 002
     Dates: start: 20070101
  2. FENTANYL CITRATE [Suspect]
     Indication: BACK PAIN
     Dosage: SEE IMAGE
     Route: 002
     Dates: start: 20070101
  3. FENTANYL CITRATE [Suspect]
     Indication: BACK PAIN
     Dosage: SEE IMAGE
     Route: 002
     Dates: start: 20090101
  4. FENTANYL CITRATE [Suspect]
     Indication: BACK PAIN
     Dosage: SEE IMAGE
     Route: 002
     Dates: start: 20090101
  5. CLONIDINE [Concomitant]
  6. FENTANYL-100 [Concomitant]
  7. CLONAZEPAM [Concomitant]
  8. FIORICET [Concomitant]
  9. ZANAFLEX [Concomitant]
  10. TREXIMET(SUMATRIPTAN SUCCINATE) [Concomitant]
  11. OXYBUTYNIN CHLORIDE ER (OXYDUTYNIN HYDROCHLORIDE) [Concomitant]

REACTIONS (10)
  - CHEST PAIN [None]
  - DRUG DEPENDENCE [None]
  - DYSKINESIA [None]
  - HEADACHE [None]
  - HYPERTENSION [None]
  - HYPOPHAGIA [None]
  - INSOMNIA [None]
  - NAUSEA [None]
  - TREMOR [None]
  - WEIGHT DECREASED [None]
